FAERS Safety Report 4811493-X (Version None)
Quarter: 2005Q4

REPORT INFORMATION
  Report Type: 
  Country: None (occurrence: None)
  Receive Date: 20051027
  Receipt Date: 20051018
  Transmission Date: 20060501
  Serious: Yes (Hospitalization)
  Sender: FDA-Public Use
  Company Number: US-BRISTOL-MYERS SQUIBB COMPANY-13149109

PATIENT
  Age: 58 Year
  Sex: Male

DRUGS (10)
  1. CISPLATIN [Suspect]
     Indication: SQUAMOUS CELL CARCINOMA
     Route: 042
     Dates: start: 20010531, end: 20010924
  2. BLINDED: CETUXIMAB [Suspect]
     Indication: SQUAMOUS CELL CARCINOMA
     Route: 042
     Dates: start: 20010531, end: 20010924
  3. BLINDED: PLACEBO [Suspect]
     Indication: SQUAMOUS CELL CARCINOMA
     Route: 042
     Dates: start: 20010531, end: 20010924
  4. ROXICET [Concomitant]
  5. DURAGESIC-100 [Concomitant]
     Route: 062
  6. REGLAN [Concomitant]
  7. XANAX [Concomitant]
  8. SYNTHROID [Concomitant]
  9. PHENERGAN [Concomitant]
  10. ZANTAC [Concomitant]

REACTIONS (6)
  - DEHYDRATION [None]
  - HYPOALBUMINAEMIA [None]
  - HYPOKALAEMIA [None]
  - HYPOTHYROIDISM [None]
  - SEPSIS [None]
  - VOMITING [None]
